FAERS Safety Report 9226146 (Version 1)
Quarter: 2013Q2

REPORT INFORMATION
  Report Type: Spontaneous
  Country: US (occurrence: US)
  Receive Date: 20130411
  Receipt Date: 20130411
  Transmission Date: 20140414
  Serious: No
  Sender: FDA-Public Use
  Company Number: US-PFIZER INC-2013114823

PATIENT
  Age: 56 Year
  Sex: Female
  Weight: 64.4 kg

DRUGS (6)
  1. NEURONTIN [Suspect]
     Indication: NECK PAIN
     Dosage: 200 MG, THREE TO FOUR TIMES A DAY
  2. NEURONTIN [Suspect]
     Indication: BACK PAIN
     Dosage: 600 MG, 4X/DAY
  3. NEURONTIN [Suspect]
     Indication: PAIN IN EXTREMITY
  4. NEURONTIN [Suspect]
     Indication: HYPOAESTHESIA
  5. TESSALON [Concomitant]
     Indication: COUGH
     Dosage: UNK, AS NEEDED
  6. TESSALON [Concomitant]
     Indication: RESPIRATORY TRACT CONGESTION

REACTIONS (1)
  - Neuralgia [Unknown]
